FAERS Safety Report 23343930 (Version 1)
Quarter: 2023Q4

REPORT INFORMATION
  Report Type: Spontaneous
  Country: JP (occurrence: JP)
  Receive Date: 20231227
  Receipt Date: 20231227
  Transmission Date: 20240109
  Serious: Yes (Hospitalization, Other)
  Sender: FDA-Public Use
  Company Number: JP-Eisai-202311786_LEN-EC_P_1

PATIENT
  Age: 79 Year
  Sex: Female

DRUGS (2)
  1. LENVIMA [Suspect]
     Active Substance: LENVATINIB
     Indication: Endometrial cancer
     Dosage: UNKNOWN DOSE AND FREQUENCY
     Route: 048
  2. KEYTRUDA [Suspect]
     Active Substance: PEMBROLIZUMAB
     Indication: Endometrial cancer
     Route: 041

REACTIONS (6)
  - Hyperthyroidism [Unknown]
  - Rhabdomyolysis [Unknown]
  - Myocarditis [Unknown]
  - Hypertension [Unknown]
  - Blood creatine phosphokinase increased [Unknown]
  - Cardiac disorder [Unknown]
